FAERS Safety Report 6644508-7 (Version None)
Quarter: 2010Q1

REPORT INFORMATION
  Report Type: 
  Country: None (occurrence: None)
  Receive Date: 20100304
  Receipt Date: 20090811
  Transmission Date: 20100710
  Serious: Yes (Hospitalization)
  Sender: FDA-Public Use
  Company Number: US-003278

PATIENT
  Sex: Female

DRUGS (3)
  1. ISOVUE-300 [Suspect]
     Indication: ABDOMEN SCAN
     Dosage: 120ML QD INTRAVENOUS (NOT OTHERWISE SPECIFIED)
     Route: 042
     Dates: start: 20090806, end: 20090806
  2. ISOVUE-300 [Suspect]
     Indication: APPENDICITIS
     Dosage: 120ML QD INTRAVENOUS (NOT OTHERWISE SPECIFIED)
     Route: 042
     Dates: start: 20090806, end: 20090806
  3. BENADRYL [Concomitant]

REACTIONS (1)
  - ANAPHYLACTIC REACTION [None]
